FAERS Safety Report 4706839-7 (Version None)
Quarter: 2005Q3

REPORT INFORMATION
  Report Type: 
  Country: None (occurrence: None)
  Receive Date: 20050705
  Receipt Date: 20050624
  Transmission Date: 20060218
  Serious: Yes (Other)
  Sender: FDA-Public Use
  Company Number: 2005092960

PATIENT
  Age: 73 Year
  Sex: Female
  Weight: 55.7924 kg

DRUGS (11)
  1. BEXTRA [Suspect]
     Indication: OSTEOARTHRITIS
     Dosage: 10 MG (10 MG, 1 IN 1 D) ORAL
     Route: 048
     Dates: start: 20040101
  2. REMICADE [Suspect]
     Indication: ARTHRITIS
     Dosage: INTRAVENOUS
     Route: 042
     Dates: start: 20040101
  3. MAGNESIUM [Concomitant]
  4. POTASSIUM CHLORIDE [Concomitant]
  5. CALCIUM GLUCONATE [Concomitant]
  6. VITAMIN B-12 [Concomitant]
  7. VITAMINS [Concomitant]
  8. ELAVIL [Concomitant]
  9. EVISTA [Concomitant]
  10. ALL OTHER THERAPEUTIC PRODUCTS [Concomitant]
  11. REMICADE [Concomitant]

REACTIONS (6)
  - BLISTER [None]
  - BODY TEMPERATURE INCREASED [None]
  - BREAST CANCER FEMALE [None]
  - LUPUS-LIKE SYNDROME [None]
  - RASH PAPULAR [None]
  - RASH PUSTULAR [None]
